FAERS Safety Report 13906884 (Version 1)
Quarter: 2017Q3

REPORT INFORMATION
  Report Type: Spontaneous
  Country: FR (occurrence: FR)
  Receive Date: 20170825
  Receipt Date: 20170825
  Transmission Date: 20171127
  Serious: Yes (Hospitalization, Other)
  Sender: FDA-Public Use
  Company Number: FR-SA-2017SA155237

PATIENT
  Age: 85 Year
  Sex: Female

DRUGS (13)
  1. NOVORAPID [Suspect]
     Active Substance: INSULIN ASPART
     Indication: DIABETES MELLITUS
     Route: 058
     Dates: start: 20170704, end: 20170725
  2. ATROVENT [Suspect]
     Active Substance: IPRATROPIUM BROMIDE
     Indication: DYSPNOEA
     Route: 055
     Dates: start: 20170722, end: 20170725
  3. TAZOBACTAM/PIPERACILLIN [Suspect]
     Active Substance: PIPERACILLIN SODIUM\TAZOBACTAM SODIUM
     Indication: SEPTIC SHOCK
     Route: 042
     Dates: start: 20170723, end: 20170725
  4. LASILIX FAIBLE [Concomitant]
     Active Substance: FUROSEMIDE
     Route: 065
     Dates: start: 20170703
  5. LEVOTHYROX [Concomitant]
     Active Substance: LEVOTHYROXINE
     Route: 065
     Dates: start: 20170703
  6. LERCANIDIPINE [Concomitant]
     Active Substance: LERCANIDIPINE
     Route: 065
     Dates: start: 20170703
  7. PREVISCAN [Concomitant]
     Active Substance: FLUINDIONE
     Route: 065
     Dates: start: 20170703
  8. DOLIPRANE [Concomitant]
     Active Substance: ACETAMINOPHEN
     Route: 065
     Dates: start: 20170703
  9. FLECAINE LP [Concomitant]
     Active Substance: FLECAINIDE
     Route: 065
     Dates: start: 20170703
  10. STILNOX [Suspect]
     Active Substance: ZOLPIDEM TARTRATE
     Indication: INSOMNIA
     Route: 048
     Dates: start: 20170716, end: 20170725
  11. TAHOR [Suspect]
     Active Substance: ATORVASTATIN CALCIUM
     Indication: CEREBROVASCULAR ACCIDENT
     Route: 048
     Dates: start: 20170706, end: 20170725
  12. VENTOLINE [Suspect]
     Active Substance: ALBUTEROL
     Indication: DYSPNOEA
     Route: 055
     Dates: start: 20170720, end: 20170725
  13. CALCIPARINE [Concomitant]
     Active Substance: HEPARIN CALCIUM
     Route: 065
     Dates: start: 20170701, end: 20170802

REACTIONS (4)
  - Rash maculo-papular [None]
  - Jaundice [Recovered/Resolved]
  - Toxic skin eruption [None]
  - Cholestasis [Recovering/Resolving]

NARRATIVE: CASE EVENT DATE: 20170726
